FAERS Safety Report 6729793-5 (Version None)
Quarter: 2010Q2

REPORT INFORMATION
  Report Type: 
  Country: None (occurrence: None)
  Receive Date: 20100518
  Receipt Date: 20100507
  Transmission Date: 20101027
  Serious: Yes (Other)
  Sender: FDA-Public Use
  Company Number: JP-PFIZER INC-2010033718

PATIENT
  Sex: Male

DRUGS (1)
  1. SOLANAX [Suspect]
     Dosage: 3 TIMES A DAY
     Route: 048
     Dates: end: 20090701

REACTIONS (11)
  - BRUXISM [None]
  - CATARACT [None]
  - DRY EYE [None]
  - EYE PAIN [None]
  - INTRAOCULAR PRESSURE INCREASED [None]
  - MIDDLE INSOMNIA [None]
  - MUSCLE SPASMS [None]
  - SLEEP DISORDER [None]
  - STRESS [None]
  - VITREOUS FLOATERS [None]
  - WITHDRAWAL SYNDROME [None]
